FAERS Safety Report 8438690-9 (Version None)
Quarter: 2012Q2

REPORT INFORMATION
  Report Type: 
  Country: None (occurrence: None)
  Receive Date: 20120611
  Receipt Date: 20120611
  Transmission Date: 20120825
  Serious: Yes (Other)
  Sender: FDA-Public Use
  Company Number: None

PATIENT
  Age: 62 Year
  Sex: Female
  Weight: 54.4316 kg

DRUGS (1)
  1. EXFORGE [Suspect]
     Dosage: 1 DAILY
     Dates: start: 20120215, end: 20120606

REACTIONS (2)
  - URTICARIA [None]
  - OEDEMA PERIPHERAL [None]
